FAERS Safety Report 7548129-3 (Version None)
Quarter: 2011Q2

REPORT INFORMATION
  Report Type: 
  Country: None (occurrence: None)
  Receive Date: 20110615
  Receipt Date: 20110601
  Transmission Date: 20111010
  Serious: Yes (Hospitalization)
  Sender: FDA-Public Use
  Company Number: JP-AMGEN-US381866

PATIENT
  Age: 53 Year
  Sex: Male
  Weight: 53 kg

DRUGS (12)
  1. ETANERCEPT [Suspect]
     Dosage: 25 MG, 2 TIMES/WK
     Route: 058
     Dates: start: 20080728, end: 20090903
  2. OMEPRAZOLE [Concomitant]
     Indication: PROPHYLAXIS
     Dosage: UNK
  3. AMOBAN [Concomitant]
     Indication: PROPHYLAXIS
     Dosage: UNK
  4. MEDROL [Concomitant]
     Dosage: 16 MG, QD
     Route: 048
     Dates: start: 20070301, end: 20080512
  5. ETANERCEPT [Suspect]
     Indication: RHEUMATOID ARTHRITIS
     Dosage: 25 MG, 2 TIMES/WK
     Route: 058
     Dates: start: 20071113, end: 20080725
  6. VOLTAREN [Concomitant]
     Indication: RHEUMATOID ARTHRITIS
     Dosage: UNK UNK, UNK
     Route: 054
  7. ISONIAZID [Concomitant]
     Indication: PROPHYLAXIS
     Dosage: UNK UNK, UNK
     Route: 048
     Dates: start: 20071030
  8. LOXONIN [Concomitant]
     Indication: RHEUMATOID ARTHRITIS
     Dosage: UNK UNK, UNK
     Route: 048
  9. TACROLIMUS [Concomitant]
     Dosage: 3 MG, QD
     Route: 048
     Dates: start: 20070419, end: 20071213
  10. DEPAS [Concomitant]
     Indication: PROPHYLAXIS
     Dosage: UNK
  11. MEDROL [Concomitant]
     Dosage: 12 MG, QD
     Route: 048
     Dates: start: 20080513
  12. MARZULENE S [Concomitant]
     Indication: PROPHYLAXIS
     Dosage: UNK

REACTIONS (3)
  - DIZZINESS [None]
  - HEADACHE [None]
  - ENCEPHALOPATHY [None]
